FAERS Safety Report 19991138 (Version 2)
Quarter: 2021Q4

REPORT INFORMATION
  Report Type: Report from Study
  Country: DE (occurrence: DE)
  Receive Date: 20211025
  Receipt Date: 20211123
  Transmission Date: 20220303
  Serious: Yes (Hospitalization)
  Sender: FDA-Public Use
  Company Number: DE-BEH-2021137286

PATIENT
  Age: 79 Year
  Sex: Female
  Weight: 60 kg

DRUGS (41)
  1. ZEMAIRA [Suspect]
     Active Substance: .ALPHA.1-PROTEINASE INHIBITOR HUMAN
     Indication: Alpha-1 antitrypsin deficiency
     Dosage: 5.0 GRAM, TOT
     Route: 042
     Dates: start: 20210419, end: 20210419
  2. ZEMAIRA [Suspect]
     Active Substance: .ALPHA.1-PROTEINASE INHIBITOR HUMAN
     Dosage: 5.0 GRAM
     Route: 042
     Dates: start: 20210426, end: 20210426
  3. ZEMAIRA [Suspect]
     Active Substance: .ALPHA.1-PROTEINASE INHIBITOR HUMAN
     Dosage: 5.0 GRAM, TOT
     Route: 042
     Dates: start: 20210505, end: 20210505
  4. ZEMAIRA [Suspect]
     Active Substance: .ALPHA.1-PROTEINASE INHIBITOR HUMAN
     Dosage: 5.0 GRAM
     Route: 042
     Dates: start: 20210517, end: 20210517
  5. ZEMAIRA [Suspect]
     Active Substance: .ALPHA.1-PROTEINASE INHIBITOR HUMAN
     Dosage: UNK
     Route: 042
     Dates: start: 20210517, end: 20210517
  6. ZEMAIRA [Suspect]
     Active Substance: .ALPHA.1-PROTEINASE INHIBITOR HUMAN
     Dosage: UNK
     Route: 042
     Dates: start: 20210517, end: 20210517
  7. ZEMAIRA [Suspect]
     Active Substance: .ALPHA.1-PROTEINASE INHIBITOR HUMAN
     Dosage: 5.0 GRAM, TOT
     Route: 042
     Dates: start: 20210526, end: 20210526
  8. ZEMAIRA [Suspect]
     Active Substance: .ALPHA.1-PROTEINASE INHIBITOR HUMAN
     Dosage: 5.0 GRAM, TOT
     Route: 042
     Dates: start: 20210531, end: 20210531
  9. ZEMAIRA [Suspect]
     Active Substance: .ALPHA.1-PROTEINASE INHIBITOR HUMAN
     Dosage: 5.0 GRAM
     Route: 042
     Dates: start: 20210607, end: 20210607
  10. ZEMAIRA [Suspect]
     Active Substance: .ALPHA.1-PROTEINASE INHIBITOR HUMAN
     Dosage: UNK
     Route: 042
     Dates: start: 20210607, end: 20210607
  11. ZEMAIRA [Suspect]
     Active Substance: .ALPHA.1-PROTEINASE INHIBITOR HUMAN
     Dosage: UNK
     Route: 042
     Dates: start: 20210607, end: 20210607
  12. ZEMAIRA [Suspect]
     Active Substance: .ALPHA.1-PROTEINASE INHIBITOR HUMAN
     Dosage: 4 GRAM, TOT
     Route: 042
     Dates: start: 20210614, end: 20210614
  13. ZEMAIRA [Suspect]
     Active Substance: .ALPHA.1-PROTEINASE INHIBITOR HUMAN
     Dosage: 1 GRAM, TOT
     Route: 042
     Dates: start: 20210614, end: 20210614
  14. ZEMAIRA [Suspect]
     Active Substance: .ALPHA.1-PROTEINASE INHIBITOR HUMAN
     Dosage: 5.0 GRAM, TOT
     Route: 042
     Dates: start: 20210621, end: 20210621
  15. ZEMAIRA [Suspect]
     Active Substance: .ALPHA.1-PROTEINASE INHIBITOR HUMAN
     Dosage: UNK
     Route: 042
     Dates: start: 20210621, end: 20210621
  16. ZEMAIRA [Suspect]
     Active Substance: .ALPHA.1-PROTEINASE INHIBITOR HUMAN
     Dosage: UNK
     Route: 042
     Dates: start: 20210621, end: 20210621
  17. ZEMAIRA [Suspect]
     Active Substance: .ALPHA.1-PROTEINASE INHIBITOR HUMAN
     Dosage: 5.0 GRAM, TOT
     Route: 042
     Dates: start: 20210628, end: 20210628
  18. ZEMAIRA [Suspect]
     Active Substance: .ALPHA.1-PROTEINASE INHIBITOR HUMAN
     Dosage: 5.0 GRAM, TOT
     Route: 042
     Dates: start: 20210705, end: 20210705
  19. ZEMAIRA [Suspect]
     Active Substance: .ALPHA.1-PROTEINASE INHIBITOR HUMAN
     Dosage: 5.0 GRAM, TOT
     Route: 042
     Dates: start: 20210712, end: 20210712
  20. ZEMAIRA [Suspect]
     Active Substance: .ALPHA.1-PROTEINASE INHIBITOR HUMAN
     Dosage: 5.0 GRAM, TOT
     Route: 042
     Dates: start: 20210719, end: 20210719
  21. ZEMAIRA [Suspect]
     Active Substance: .ALPHA.1-PROTEINASE INHIBITOR HUMAN
     Dosage: 5.0 GRAM, TOT
     Route: 042
     Dates: start: 20210726, end: 20210726
  22. ZEMAIRA [Suspect]
     Active Substance: .ALPHA.1-PROTEINASE INHIBITOR HUMAN
     Dosage: UNK
     Route: 042
     Dates: start: 20210726, end: 20210726
  23. ZEMAIRA [Suspect]
     Active Substance: .ALPHA.1-PROTEINASE INHIBITOR HUMAN
     Dosage: UNK
     Route: 042
     Dates: start: 20210726, end: 20210726
  24. ZEMAIRA [Suspect]
     Active Substance: .ALPHA.1-PROTEINASE INHIBITOR HUMAN
     Dosage: 5.0 GRAM, TOT
     Route: 042
     Dates: start: 20210802, end: 20210802
  25. ZEMAIRA [Suspect]
     Active Substance: .ALPHA.1-PROTEINASE INHIBITOR HUMAN
     Dosage: UNK
     Route: 042
     Dates: start: 20210802, end: 20210802
  26. ZEMAIRA [Suspect]
     Active Substance: .ALPHA.1-PROTEINASE INHIBITOR HUMAN
     Dosage: UNK
     Route: 042
     Dates: start: 20210802, end: 20210802
  27. ZEMAIRA [Suspect]
     Active Substance: .ALPHA.1-PROTEINASE INHIBITOR HUMAN
     Dosage: 5.0 GRAM, TOT
     Route: 042
     Dates: start: 20210809, end: 20210809
  28. ZEMAIRA [Suspect]
     Active Substance: .ALPHA.1-PROTEINASE INHIBITOR HUMAN
     Dosage: UNK
     Route: 042
     Dates: start: 20210809, end: 20210809
  29. ZEMAIRA [Suspect]
     Active Substance: .ALPHA.1-PROTEINASE INHIBITOR HUMAN
     Dosage: UNK
     Route: 042
     Dates: start: 20210809, end: 20210809
  30. ZEMAIRA [Suspect]
     Active Substance: .ALPHA.1-PROTEINASE INHIBITOR HUMAN
     Dosage: 5.0 GRAM, TOT
     Route: 042
     Dates: start: 20210818, end: 20210818
  31. ZEMAIRA [Suspect]
     Active Substance: .ALPHA.1-PROTEINASE INHIBITOR HUMAN
     Dosage: 5.0 GRAM, TOT
     Route: 042
     Dates: start: 20210825, end: 20210825
  32. ZEMAIRA [Suspect]
     Active Substance: .ALPHA.1-PROTEINASE INHIBITOR HUMAN
     Dosage: 5.0 GRAM, TOT
     Route: 042
     Dates: start: 20210830, end: 20210830
  33. ZEMAIRA [Suspect]
     Active Substance: .ALPHA.1-PROTEINASE INHIBITOR HUMAN
     Dosage: 5.0 GRAM, TOT
     Route: 042
     Dates: start: 20210913, end: 20210913
  34. GLYCOPYRRONIUM\INDACATEROL [Concomitant]
     Active Substance: GLYCOPYRRONIUM\INDACATEROL
  35. BUDESONIDE [Concomitant]
     Active Substance: BUDESONIDE
  36. ROFLUMILAST [Concomitant]
     Active Substance: ROFLUMILAST
  37. PREDNISOLONE [Concomitant]
     Active Substance: PREDNISOLONE
  38. ALBUTEROL [Concomitant]
     Active Substance: ALBUTEROL
  39. OXYGEN [Concomitant]
     Active Substance: OXYGEN
  40. DIGITOXINE [Concomitant]
  41. EDOXABAN [Concomitant]
     Active Substance: EDOXABAN
     Route: 048

REACTIONS (6)
  - Respiratory failure [Fatal]
  - General physical health deterioration [Fatal]
  - Dyspnoea at rest [Fatal]
  - Oedema peripheral [Fatal]
  - Hypoxia [Fatal]
  - Respiratory acidosis [Fatal]
